FAERS Safety Report 9044130 (Version 1)
Quarter: 2013Q1

REPORT INFORMATION
  Report Type: Report from Study
  Country: US (occurrence: US)
  Receive Date: 20130130
  Receipt Date: 20130130
  Transmission Date: 20140127
  Serious: No
  Sender: FDA-Public Use
  Company Number: US-ABBOTT-12P-163-0949779-00

PATIENT
  Age: 48 Year
  Sex: Male

DRUGS (12)
  1. HUMIRA 40 MG/0.8 ML PEN [Suspect]
     Indication: PSORIASIS
     Dosage: LOADING DOSE
     Dates: start: 20120604, end: 20120604
  2. HUMIRA 40 MG/0.8 ML PEN [Suspect]
     Dates: start: 20120611, end: 20120611
  3. HUMIRA 40 MG/0.8 ML PEN [Suspect]
     Dosage: EVERY OTHER MONDAY
     Dates: start: 20120618
  4. CLOBEX [Concomitant]
     Indication: PSORIASIS
  5. VECTICAL [Concomitant]
     Indication: PSORIASIS
  6. BETAMETHASONE [Concomitant]
     Indication: PSORIASIS
     Route: 061
  7. DOVONEX [Concomitant]
     Indication: PSORIASIS
     Dosage: STEROID LOTION (NO LONGER TAKES BECAUSE IT FELT LIKE IT EATS HIS SKIN)
  8. EXFORGE [Concomitant]
     Indication: HYPERTENSION
     Dosage: THINKS IT IS THREE PILLS IN ONE
  9. LEVOTHYROXINE [Concomitant]
     Indication: HYPOTHYROIDISM
  10. GABAPENTIN [Concomitant]
     Indication: ANALGESIC THERAPY
     Dosage: 2 PILLS AT NIGHT
  11. ZOLPIDEM [Concomitant]
     Indication: PRODUCT USED FOR UNKNOWN INDICATION
     Dosage: AT NIGHT
  12. OMEPRAZOLE [Concomitant]
     Indication: PRODUCT USED FOR UNKNOWN INDICATION

REACTIONS (4)
  - Incorrect dose administered [Not Recovered/Not Resolved]
  - Pruritus [Not Recovered/Not Resolved]
  - Injection site pain [Recovering/Resolving]
  - Diarrhoea [Recovered/Resolved]
